FAERS Safety Report 7228900-8 (Version None)
Quarter: 2011Q1

REPORT INFORMATION
  Report Type: 
  Country: None (occurrence: None)
  Receive Date: 20110117
  Receipt Date: 20110105
  Transmission Date: 20110831
  Serious: Yes (Hospitalization)
  Sender: FDA-Public Use
  Company Number: US-ELI_LILLY_AND_COMPANY-US201006006069

PATIENT
  Sex: Female

DRUGS (15)
  1. FORTEO [Suspect]
     Dosage: 20 UG, DAILY (1/D)
  2. MYLANTA [Concomitant]
  3. VITAMIN D [Concomitant]
     Dosage: UNK, 2/D
  4. FERROUS SULFATE [Concomitant]
  5. NITROGLYCERIN [Concomitant]
     Dosage: UNK, AS NEEDED
  6. ASPIRIN [Concomitant]
     Dosage: 325 MG, DAILY (1/D)
  7. SYNTHROID [Concomitant]
     Dosage: UNK, DAILY (1/D)
  8. FORTEO [Suspect]
     Indication: OSTEOPOROSIS
     Dosage: 20 UG, DAILY (1/D)
     Route: 065
  9. PRAVACHOL [Concomitant]
  10. PLAVIX [Concomitant]
     Dosage: UNK, DAILY (1/D)
  11. MULTI-VITAMIN [Concomitant]
     Dosage: UNK, DAILY (1/D)
  12. CALCIUM [Concomitant]
     Dosage: UNK, 2/D
  13. LEXAPRO [Concomitant]
  14. CARVEDILOL [Concomitant]
  15. SUCRALFATE [Concomitant]
     Dosage: UNK, DAILY (1/D)

REACTIONS (13)
  - MYOCARDIAL INFARCTION [None]
  - GASTROOESOPHAGEAL REFLUX DISEASE [None]
  - DYSPEPSIA [None]
  - INJECTION SITE HAEMATOMA [None]
  - MUSCLE SPASMS [None]
  - CHEST PAIN [None]
  - CONTUSION [None]
  - LIMB INJURY [None]
  - DIARRHOEA [None]
  - CONSTIPATION [None]
  - FATIGUE [None]
  - INJECTION SITE PAIN [None]
  - CYSTITIS [None]
